FAERS Safety Report 17336136 (Version 2)
Quarter: 2020Q1

REPORT INFORMATION
  Report Type: Spontaneous
  Country: US (occurrence: US)
  Receive Date: 20200128
  Receipt Date: 20200207
  Transmission Date: 20200409
  Serious: No
  Sender: FDA-Public Use
  Company Number: US-TAKEDA-2020TUS005232

PATIENT
  Sex: Male
  Weight: 116.1 kg

DRUGS (4)
  1. TRINTELLIX [Suspect]
     Active Substance: VORTIOXETINE HYDROBROMIDE
     Indication: DEPRESSION
     Dosage: 10 MILLIGRAM, QD
     Route: 065
     Dates: start: 201906
  2. TRINTELLIX [Suspect]
     Active Substance: VORTIOXETINE HYDROBROMIDE
     Indication: ORTHOSTATIC HYPOTENSION
  3. LAMICTAL [Concomitant]
     Active Substance: LAMOTRIGINE
     Indication: DEPRESSION
     Dosage: UNK
     Route: 065
  4. TRINTELLIX [Suspect]
     Active Substance: VORTIOXETINE HYDROBROMIDE
     Indication: TINNITUS
     Dosage: 20 MILLIGRAM, QD
     Route: 048
     Dates: start: 20190708, end: 20200107

REACTIONS (5)
  - Depressed mood [Unknown]
  - Anhedonia [Unknown]
  - Drug ineffective [Unknown]
  - Hypersomnia [Unknown]
  - Asthenia [Unknown]
